FAERS Safety Report 7308936-9 (Version None)
Quarter: 2011Q1

REPORT INFORMATION
  Report Type: 
  Country: None (occurrence: None)
  Receive Date: 20110223
  Receipt Date: 20110217
  Transmission Date: 20110831
  Serious: Yes (Hospitalization)
  Sender: FDA-Public Use
  Company Number: FR-PFIZER INC-2011034990

PATIENT
  Age: 66 Year
  Sex: Male

DRUGS (7)
  1. OFLOXACIN [Suspect]
     Dosage: 200 MG, 2X/DAY
     Route: 042
     Dates: start: 20110101, end: 20110120
  2. XYZAL [Concomitant]
  3. TAHOR [Concomitant]
  4. SELOKEN [Concomitant]
  5. TAZOCILLINE [Suspect]
     Dosage: 4 G, 3X/DAY
     Route: 042
     Dates: start: 20101218, end: 20110120
  6. ASPIRIN [Concomitant]
  7. INIPOMP [Concomitant]

REACTIONS (1)
  - DRUG RASH WITH EOSINOPHILIA AND SYSTEMIC SYMPTOMS [None]
